FAERS Safety Report 4333801-9 (Version None)
Quarter: 2004Q2

REPORT INFORMATION
  Report Type: 
  Country: None (occurrence: None)
  Receive Date: 20040402
  Receipt Date: 20040322
  Transmission Date: 20050107
  Serious: Yes (Hospitalization, Disabling)
  Sender: FDA-Public Use
  Company Number: GB-JNJFOC-20040301733

PATIENT
  Age: 67 Year
  Sex: Male

DRUGS (9)
  1. RISPERDAL [Suspect]
     Indication: AGITATION
     Dosage: 1.5 MG, IN 1 DAY, ORAL
     Route: 048
     Dates: start: 20040226, end: 20040309
  2. PHENYTOIN [Concomitant]
  3. CARBAMAZEPINE RETARD (CARBAMAZEPINE) [Concomitant]
  4. ASPIRIN [Concomitant]
  5. PERINDOPRIL (PERINDOPRIL) [Concomitant]
  6. SIMVASTATIN [Concomitant]
  7. ATENOLOL [Concomitant]
  8. TILDIEM RETARD (DILTIAZEM HYDROCHLORIDE) [Concomitant]
  9. RANITIDINE [Concomitant]

REACTIONS (1)
  - HEMIPARESIS [None]
